FAERS Safety Report 5242586-3 (Version None)
Quarter: 2007Q1

REPORT INFORMATION
  Report Type: 
  Country: None (occurrence: None)
  Receive Date: 20070221
  Receipt Date: 20070215
  Transmission Date: 20070707
  Serious: Yes (Death)
  Sender: FDA-Public Use
  Company Number: LB-AVENTIS-200711312GDDC

PATIENT
  Sex: Female
  Weight: 61 kg

DRUGS (9)
  1. AMARYL [Suspect]
     Route: 048
     Dates: end: 20070210
  2. DULCOLAX                           /00061602/ [Concomitant]
     Route: 048
     Dates: end: 20070210
  3. ISORDIL [Concomitant]
     Route: 048
     Dates: end: 20070210
  4. COZAAR [Concomitant]
     Indication: HYPERTENSION
     Route: 048
     Dates: end: 20070210
  5. CORDARONE [Concomitant]
     Route: 048
     Dates: end: 20070210
  6. LASIX [Concomitant]
     Route: 048
     Dates: end: 20070210
  7. LANOXIN [Concomitant]
     Route: 048
     Dates: end: 20070210
  8. ALPROX [Concomitant]
     Indication: ANXIETY
     Route: 048
     Dates: end: 20070210
  9. AMITRIPTYLINE HCL [Concomitant]
     Indication: DEPRESSION
     Route: 048
     Dates: end: 20070210

REACTIONS (1)
  - ACUTE MYOCARDIAL INFARCTION [None]
